FAERS Safety Report 17744324 (Version 4)
Quarter: 2021Q3

REPORT INFORMATION
  Report Type: Report from Study
  Country: GT (occurrence: GT)
  Receive Date: 20200505
  Receipt Date: 20210727
  Transmission Date: 20211014
  Serious: Yes (Other)
  Sender: FDA-Public Use
  Company Number: GT-SA-2019SA276909

PATIENT
  Age: 9 Year
  Sex: Female
  Weight: 16.3 kg

DRUGS (2)
  1. LARONIDASE [Suspect]
     Active Substance: LARONIDASE
     Indication: MUCOPOLYSACCHARIDOSIS I
     Dosage: 3 DF, QOW
     Route: 041
  2. LARONIDASE [Suspect]
     Active Substance: LARONIDASE
     Dosage: 3 DF, QW
     Route: 042
     Dates: end: 20210226

REACTIONS (15)
  - Skin discolouration [Recovered/Resolved]
  - Pyrexia [Not Recovered/Not Resolved]
  - Haemoptysis [Recovered/Resolved]
  - Off label use [Unknown]
  - Eating disorder [Recovered/Resolved]
  - Epistaxis [Recovered/Resolved]
  - Seizure [Recovered/Resolved]
  - Somnolence [Recovered/Resolved]
  - Dyspnoea [Recovering/Resolving]
  - Product dose omission issue [Unknown]
  - Nasal congestion [Recovering/Resolving]
  - Cough [Not Recovered/Not Resolved]
  - Eye movement disorder [Recovered/Resolved]
  - Productive cough [Recovered/Resolved]
  - Peripheral swelling [Recovering/Resolving]

NARRATIVE: CASE EVENT DATE: 20190915
